FAERS Safety Report 11395184 (Version 1)
Quarter: 2015Q3

REPORT INFORMATION
  Report Type: Spontaneous
  Country: US (occurrence: US)
  Receive Date: 20150819
  Receipt Date: 20150819
  Transmission Date: 20151125
  Serious: No
  Sender: FDA-Public Use
  Company Number: US-LPDUSPRD-20150414

PATIENT
  Age: 48 Year
  Sex: Female

DRUGS (1)
  1. INJECTAFER [Suspect]
     Active Substance: FERRIC CARBOXYMALTOSE
     Dosage: 750MG/100CC NORMAL SALINE
     Route: 042
     Dates: start: 20150602, end: 20150602

REACTIONS (3)
  - Nausea [Unknown]
  - Abdominal pain upper [Unknown]
  - Flatulence [Unknown]

NARRATIVE: CASE EVENT DATE: 20150603
